FAERS Safety Report 4479882-3 (Version None)
Quarter: 2004Q3

REPORT INFORMATION
  Report Type: 
  Country: None (occurrence: None)
  Receive Date: 20040923
  Receipt Date: 20040625
  Transmission Date: 20050211
  Serious: No
  Sender: FDA-Public Use
  Company Number: USA040465298

PATIENT
  Age: 60 Year
  Sex: Female

DRUGS (12)
  1. FORTEO [Suspect]
     Indication: OSTEOPOROSIS
     Dates: start: 20040414, end: 20040414
  2. EVISTA [Concomitant]
  3. PRINIVIL [Concomitant]
  4. PROTONIX [Concomitant]
  5. SEREVENT DISKUS (SALMETEROL XINAFOATE) [Concomitant]
  6. PREDNISONE [Concomitant]
  7. REGLAN [Concomitant]
  8. COMBIVENT [Concomitant]
  9. OXYGEN [Concomitant]
  10. LORAZEPAM [Concomitant]
  11. WELLBUTRIN [Concomitant]
  12. DUONEB [Concomitant]

REACTIONS (7)
  - ANXIETY [None]
  - ASTHENIA [None]
  - DYSPNOEA [None]
  - FAECAL INCONTINENCE [None]
  - GAIT DISTURBANCE [None]
  - MUSCLE CRAMP [None]
  - MYALGIA [None]
